FAERS Safety Report 12851284 (Version 2)
Quarter: 2016Q4

REPORT INFORMATION
  Report Type: Report from Study
  Country: CA (occurrence: CA)
  Receive Date: 20161015
  Receipt Date: 20161103
  Transmission Date: 20170207
  Serious: Yes (Hospitalization, Other)
  Sender: FDA-Public Use
  Company Number: CA-AMGEN-CANSL2016138561

PATIENT
  Age: 77 Year
  Sex: Female

DRUGS (17)
  1. COVERSYL [Concomitant]
     Active Substance: PERINDOPRIL
  2. FLOVENT [Concomitant]
     Active Substance: FLUTICASONE PROPIONATE
  3. ATENOLOL. [Concomitant]
     Active Substance: ATENOLOL
     Dosage: UNK
  4. SPIRIVA [Concomitant]
     Active Substance: TIOTROPIUM BROMIDE MONOHYDRATE
  5. ADVAIR HFA [Concomitant]
     Active Substance: FLUTICASONE PROPIONATE\SALMETEROL XINAFOATE
  6. FENTANYL. [Concomitant]
     Active Substance: FENTANYL
  7. PROLIA [Suspect]
     Active Substance: DENOSUMAB
     Indication: PRODUCT USED FOR UNKNOWN INDICATION
     Dosage: 60 MG/ML, UNK
     Route: 065
     Dates: start: 20140827
  8. VANCOMYCIN [Concomitant]
     Active Substance: VANCOMYCIN
  9. ACETAMINOPHEN. [Concomitant]
     Active Substance: ACETAMINOPHEN
  10. SALBUTAMOL [Concomitant]
     Active Substance: ALBUTEROL
  11. LACTULOSE. [Concomitant]
     Active Substance: LACTULOSE
  12. VITAMIN D [Concomitant]
     Active Substance: CHOLECALCIFEROL
  13. ROSUVASTATIN. [Concomitant]
     Active Substance: ROSUVASTATIN
  14. ASA EC [Concomitant]
  15. FUROSEMIDE. [Concomitant]
     Active Substance: FUROSEMIDE
  16. CORTEF [Concomitant]
     Active Substance: HYDROCORTISONE
  17. PANTOPRAZOLE [Concomitant]
     Active Substance: PANTOPRAZOLE SODIUM

REACTIONS (8)
  - Generalised oedema [Unknown]
  - Burning sensation [Unknown]
  - Skin injury [Unknown]
  - Mobility decreased [Unknown]
  - Gait disturbance [Unknown]
  - Palpitations [Unknown]
  - Pneumonia [Unknown]
  - Inflammation [Not Recovered/Not Resolved]

NARRATIVE: CASE EVENT DATE: 2016
